FAERS Safety Report 7238069-1 (Version None)
Quarter: 2011Q1

REPORT INFORMATION
  Report Type: 
  Country: None (occurrence: None)
  Receive Date: 20110121
  Receipt Date: 20110120
  Transmission Date: 20110831
  Serious: Yes (Life-Threatening, Hospitalization)
  Sender: FDA-Public Use
  Company Number: B0691632A

PATIENT
  Sex: Male

DRUGS (28)
  1. NEUPOGEN [Concomitant]
     Route: 065
     Dates: start: 20091111, end: 20091113
  2. GRANULOCYTES [Concomitant]
     Route: 065
  3. PRIMPERAN TAB [Concomitant]
     Route: 065
     Dates: start: 20091110, end: 20091113
  4. CIPROFLOXACIN HYDROCHLORIDE [Suspect]
     Indication: STAPHYLOCOCCAL INFECTION
     Dosage: 500MG PER DAY
     Route: 048
     Dates: start: 20091117, end: 20091121
  5. TRIFLUCAN [Suspect]
     Dosage: 50MG PER DAY
     Route: 048
     Dates: start: 20091101
  6. LAROXYL [Suspect]
     Indication: PRODUCT USED FOR UNKNOWN INDICATION
     Route: 048
     Dates: start: 20091109, end: 20091111
  7. HALDOL [Suspect]
     Indication: NAUSEA
     Dosage: 2MG PER DAY
     Route: 048
     Dates: start: 20091112, end: 20091113
  8. CONTRAMAL [Suspect]
     Indication: PAIN
     Route: 048
     Dates: start: 20091113, end: 20091113
  9. POLARAMINE [Suspect]
     Indication: PRODUCT USED FOR UNKNOWN INDICATION
     Dosage: 1UNIT PER DAY
     Route: 042
     Dates: start: 20091113, end: 20091113
  10. BIONOLYTE [Concomitant]
     Dates: start: 20091109, end: 20091113
  11. OXYCONTIN [Concomitant]
     Route: 065
     Dates: start: 20091109, end: 20091113
  12. OXYCODONE HCL [Concomitant]
     Route: 065
     Dates: start: 20091109, end: 20091110
  13. LEXOMIL [Concomitant]
     Route: 065
     Dates: start: 20091109, end: 20091113
  14. EFFERALGAN [Concomitant]
     Route: 065
     Dates: start: 20091110, end: 20091113
  15. HYDROCORTISONE [Concomitant]
     Route: 065
     Dates: start: 20091113, end: 20091113
  16. ONDANSETRON [Concomitant]
     Route: 065
     Dates: start: 20091111
  17. AUGMENTIN [Suspect]
     Indication: STAPHYLOCOCCAL INFECTION
     Route: 048
     Dates: start: 20091117, end: 20091121
  18. EMEND [Suspect]
     Indication: PRODUCT USED FOR UNKNOWN INDICATION
     Route: 048
     Dates: start: 20091109, end: 20091113
  19. TOPALGIC (FRANCE) [Suspect]
     Indication: PAIN
     Dosage: 50MG THREE TIMES PER DAY
     Route: 048
     Dates: start: 20091113, end: 20091113
  20. NEURONTIN [Suspect]
     Indication: PRODUCT USED FOR UNKNOWN INDICATION
     Dosage: 800MG THREE TIMES PER DAY
     Route: 048
     Dates: start: 20091109, end: 20091113
  21. PACLITAXEL [Concomitant]
     Indication: CHEMOTHERAPY
     Route: 065
     Dates: start: 20091109
  22. ETOPOSIDE [Suspect]
     Indication: EXTRAGONADAL PRIMARY GERM CELL TUMOUR MIXED STAGE I
     Dosage: 770MG PER DAY
     Route: 042
     Dates: start: 20091109, end: 20091113
  23. IFOSFAMIDE [Concomitant]
     Indication: CHEMOTHERAPY
     Route: 065
     Dates: start: 20091109
  24. ZOPHREN [Concomitant]
     Route: 065
     Dates: start: 20091110, end: 20091113
  25. CARBOPLATIN [Suspect]
     Indication: EXTRAGONADAL PRIMARY GERM CELL TUMOUR MIXED STAGE I
     Dosage: 1300MG PER DAY
     Route: 042
     Dates: start: 20091109, end: 20091111
  26. FLAGYL [Concomitant]
     Route: 065
     Dates: start: 20091101, end: 20091101
  27. LIDOCAINE HYDROCHLORIDE IN PLASTIC CONTAINER [Concomitant]
     Route: 023
     Dates: start: 20091110, end: 20091113
  28. ORAMORPH SR [Concomitant]
     Route: 065
     Dates: start: 20091110, end: 20091113

REACTIONS (5)
  - CONDITION AGGRAVATED [None]
  - ILEITIS [None]
  - FEBRILE BONE MARROW APLASIA [None]
  - LIVER FUNCTION TEST ABNORMAL [None]
  - PNEUMATOSIS INTESTINALIS [None]
